APPROVED DRUG PRODUCT: SPIRONOLACTONE
Active Ingredient: SPIRONOLACTONE
Strength: 100MG
Dosage Form/Route: TABLET;ORAL
Application: A040750 | Product #003 | TE Code: AB
Applicant: OXFORD PHARMACEUTICALS LLC
Approved: Aug 29, 2006 | RLD: No | RS: No | Type: RX